FAERS Safety Report 7258390-0 (Version None)
Quarter: 2011Q1

REPORT INFORMATION
  Report Type: 
  Country: None (occurrence: None)
  Receive Date: 20110129
  Receipt Date: 20100712
  Transmission Date: 20110831
  Serious: No
  Sender: FDA-Public Use
  Company Number: US-ABBOTT-10P-163-0656303-00

PATIENT
  Sex: Female
  Weight: 56.75 kg

DRUGS (8)
  1. LEXAPRO [Concomitant]
     Indication: DEPRESSION
  2. TRAMADOL HCL [Concomitant]
     Dosage: UNKNOWN STRENGTH
     Route: 048
  3. PROMETHAZINE [Concomitant]
     Indication: NAUSEA
     Dosage: EVERY 4-6 HOURS AS NEEDED
  4. TRAZODONE [Concomitant]
     Indication: DEPRESSION
  5. HYOMAX SR [Concomitant]
     Indication: MUSCLE SPASMS
  6. HUMIRA [Suspect]
     Indication: CROHN'S DISEASE
     Dates: start: 20100107
  7. TRAMADOL HCL [Concomitant]
     Indication: PAIN
  8. TEMAZEPAM [Concomitant]
     Indication: INSOMNIA
     Dosage: 2 AT BEDTIME
     Route: 048

REACTIONS (8)
  - EYE SWELLING [None]
  - INCORRECT STORAGE OF DRUG [None]
  - DRUG INEFFECTIVE [None]
  - CROHN'S DISEASE [None]
  - DIARRHOEA [None]
  - URTICARIA [None]
  - ABDOMINAL PAIN [None]
  - NAUSEA [None]
